FAERS Safety Report 15192062 (Version 1)
Quarter: 2018Q3

REPORT INFORMATION
  Report Type: Report from Study
  Country: US (occurrence: US)
  Receive Date: 20180724
  Receipt Date: 20180724
  Transmission Date: 20181010
  Serious: Yes (Hospitalization)
  Sender: FDA-Public Use
  Company Number: US-TESARO, INC.-US-2018TSO03753

PATIENT
  Age: 67 Year
  Sex: Male
  Weight: 107.3 kg

DRUGS (2)
  1. RADIUM RA 223 DICHLORIDE [Suspect]
     Active Substance: RADIUM RA-223 DICHLORIDE
     Indication: PROSTATE CANCER
     Dosage: UNK, 1 IN 4 WEEK
     Route: 042
     Dates: start: 20180419
  2. NIRAPARIB [Suspect]
     Active Substance: NIRAPARIB
     Indication: PROSTATE CANCER
     Dosage: 100 MG, QD
     Route: 048
     Dates: start: 20180419

REACTIONS (5)
  - Nausea [Unknown]
  - Constipation [Unknown]
  - Vomiting [Unknown]
  - Back pain [Unknown]
  - Abdominal pain [Unknown]

NARRATIVE: CASE EVENT DATE: 20180709
